FAERS Safety Report 17299845 (Version 1)
Quarter: 2020Q1

REPORT INFORMATION
  Report Type: Spontaneous
  Country: US (occurrence: US)
  Receive Date: 20200122
  Receipt Date: 20200122
  Transmission Date: 20200409
  Serious: Yes (Other)
  Sender: FDA-Public Use
  Company Number: US-PFIZER INC-2020027594

PATIENT
  Age: 79 Year
  Sex: Male

DRUGS (1)
  1. VYNDAQEL [Suspect]
     Active Substance: TAFAMIDIS MEGLUMINE
     Indication: CARDIAC AMYLOIDOSIS
     Dosage: 80 MG, UNK

REACTIONS (15)
  - Dyspnoea exertional [Unknown]
  - Condition aggravated [Unknown]
  - Chills [Unknown]
  - Dry mouth [Not Recovered/Not Resolved]
  - Weight increased [Unknown]
  - Leukocytosis [Unknown]
  - Oedema peripheral [Unknown]
  - Hypoacusis [Unknown]
  - Oropharyngeal discomfort [Unknown]
  - Venous pressure jugular increased [Unknown]
  - Cough [Unknown]
  - Sputum abnormal [Unknown]
  - Back pain [Unknown]
  - Decreased appetite [Unknown]
  - Constipation [Unknown]

NARRATIVE: CASE EVENT DATE: 2020
